FAERS Safety Report 7791873-3 (Version None)
Quarter: 2011Q4

REPORT INFORMATION
  Report Type: 
  Country: None (occurrence: None)
  Receive Date: 20111003
  Receipt Date: 20110928
  Transmission Date: 20120403
  Serious: No
  Sender: FDA-Public Use
  Company Number: US-PFIZER INC-2011231855

PATIENT
  Sex: Male
  Weight: 73.469 kg

DRUGS (15)
  1. PLAVIX [Concomitant]
     Indication: CARDIAC DISORDER
     Dosage: 75 MG, UNK
  2. ISOSORBIDE MONONITRATE [Concomitant]
     Indication: CARDIAC DISORDER
     Dosage: 15 MG, 1X/DAY
  3. ALLOPURINOL [Concomitant]
     Indication: GOUT
     Dosage: 150 MG, DAILY
  4. NORVASC [Concomitant]
     Indication: CARDIAC DISORDER
     Dosage: 2.5 MG, UNK
  5. PEPCID [Concomitant]
     Indication: HYPERCHLORHYDRIA
  6. CARAFATE [Concomitant]
     Indication: HYPERCHLORHYDRIA
  7. UROXATRAL [Concomitant]
     Dosage: UNK
  8. RANEXA [Concomitant]
     Indication: CARDIAC DISORDER
     Dosage: 1000 MG IN MORNING AND 500 MG IN EVENING
  9. LIPITOR [Suspect]
     Indication: BLOOD CHOLESTEROL INCREASED
     Dosage: 20 MG, 1X/DAY
     Route: 048
     Dates: end: 20110924
  10. ASPIRIN [Concomitant]
     Indication: CARDIAC DISORDER
     Dosage: 81 MG, UNK
  11. NITROGLYCERIN [Concomitant]
     Indication: CARDIAC DISORDER
     Dosage: 0.4 MG, UNK
  12. PEPCID [Concomitant]
     Indication: GASTRITIS
     Dosage: 20 MG, UNK
  13. TOPROL-XL [Concomitant]
     Indication: CARDIAC DISORDER
     Dosage: 12.5 MG, UNK
  14. HYDROCHLOROTHIAZIDE [Concomitant]
     Indication: CARDIAC DISORDER
     Dosage: 12.5 MG, UNK
  15. CARAFATE [Concomitant]
     Indication: GASTRITIS
     Dosage: 1 G, 4X/DAY

REACTIONS (6)
  - INSOMNIA [None]
  - PAIN [None]
  - PAIN IN EXTREMITY [None]
  - MYALGIA [None]
  - HYPOKINESIA [None]
  - BODY HEIGHT DECREASED [None]
